FAERS Safety Report 9694181 (Version 1)
Quarter: 2013Q4

REPORT INFORMATION
  Report Type: Spontaneous
  Country: DE (occurrence: DE)
  Receive Date: 20131118
  Receipt Date: 20131118
  Transmission Date: 20140711
  Serious: Yes (Congenital Anomaly, Other)
  Sender: FDA-Public Use
  Company Number: DE-ABBVIE-13P-062-1157463-00

PATIENT
  Age: 40 Year
  Sex: Female

DRUGS (4)
  1. VALPROIC ACID [Suspect]
     Indication: BIPOLAR DISORDER
     Route: 065
  2. METOPROLOL [Suspect]
     Indication: PRE-ECLAMPSIA
     Route: 065
  3. SEROQUEL [Suspect]
     Indication: BIPOLAR DISORDER
     Route: 065
  4. FOLIC ACID [Concomitant]
     Indication: PRODUCT USED FOR UNKNOWN INDICATION
     Dates: start: 20080726, end: 20081126

REACTIONS (2)
  - Gestational diabetes [Unknown]
  - Pre-eclampsia [Unknown]
